FAERS Safety Report 25825067 (Version 2)
Quarter: 2025Q3

REPORT INFORMATION
  Report Type: Spontaneous
  Country: US (occurrence: US)
  Receive Date: 20250919
  Receipt Date: 20250929
  Transmission Date: 20251020
  Serious: Yes (Other)
  Sender: UCB
  Company Number: US-UCBSA-2025057243

PATIENT
  Sex: Male

DRUGS (1)
  1. BIMZELX [Suspect]
     Active Substance: BIMEKIZUMAB-BKZX
     Indication: Hidradenitis

REACTIONS (4)
  - Tachycardia [Unknown]
  - Peripheral swelling [Unknown]
  - Oedema [Unknown]
  - Therapeutic response unexpected [Unknown]
